FAERS Safety Report 15692893 (Version 2)
Quarter: 2019Q1

REPORT INFORMATION
  Report Type: Spontaneous
  Country: US (occurrence: US)
  Receive Date: 20181206
  Receipt Date: 20190225
  Transmission Date: 20190417
  Serious: Yes (Hospitalization)
  Sender: FDA-Public Use
  Company Number: US-ORPHAN EUROPE-2059740

PATIENT
  Age: 13 Month
  Sex: Male
  Weight: 11.5 kg

DRUGS (1)
  1. CARBAGLU [Suspect]
     Active Substance: CARGLUMIC ACID
     Indication: HYPERGLYCINAEMIA
     Dates: start: 20180226

REACTIONS (4)
  - Vomiting [Unknown]
  - Acidosis [Unknown]
  - Off label use [Unknown]
  - Viral infection [Unknown]

NARRATIVE: CASE EVENT DATE: 20180226
